FAERS Safety Report 8605465-7 (Version None)
Quarter: 2012Q3

REPORT INFORMATION
  Report Type: 
  Country: None (occurrence: None)
  Receive Date: 20120820
  Receipt Date: 20120810
  Transmission Date: 20120928
  Serious: Yes (Death)
  Sender: FDA-Public Use
  Company Number: AU-EISAI INC-E3810-05801-SPO-AU

PATIENT
  Sex: Male
  Weight: 64 kg

DRUGS (5)
  1. OLANZAPINE [Concomitant]
     Route: 048
  2. RABEPRAZOLE SODIUM [Suspect]
     Route: 048
  3. RISPERIDONE [Concomitant]
     Route: 048
  4. CITALOPRAM HYDROBROMIDE [Interacting]
     Dosage: UNKNOWN
     Route: 048
     Dates: start: 20100408
  5. OXAZEPAM [Concomitant]
     Dosage: 7.5
     Route: 048

REACTIONS (1)
  - DRUG LEVEL ABOVE THERAPEUTIC [None]
